FAERS Safety Report 7883788-7 (Version None)
Quarter: 2011Q4

REPORT INFORMATION
  Report Type: 
  Country: None (occurrence: None)
  Receive Date: 20111102
  Receipt Date: 20111028
  Transmission Date: 20120403
  Serious: Yes (Hospitalization)
  Sender: FDA-Public Use
  Company Number: US-JNJFOC-20110910632

PATIENT
  Age: 57 Year
  Sex: Female
  Weight: 65.77 kg

DRUGS (1)
  1. ROLAIDS [Suspect]
     Indication: GASTROOESOPHAGEAL REFLUX DISEASE
     Dosage: TWO SOFTCHEWS AS NEEDED/ ONCE PER DAY
     Route: 048
     Dates: start: 19900926, end: 20110926

REACTIONS (4)
  - INTESTINAL HAEMORRHAGE [None]
  - PRODUCT QUALITY ISSUE [None]
  - INCORRECT DRUG ADMINISTRATION DURATION [None]
  - OFF LABEL USE [None]
